FAERS Safety Report 9590505 (Version 2)
Quarter: 2013Q4

REPORT INFORMATION
  Report Type: Spontaneous
  Country: US (occurrence: US)
  Receive Date: 20131003
  Receipt Date: 20131003
  Transmission Date: 20140711
  Serious: No
  Sender: FDA-Public Use
  Company Number: US-AMGEN-USASP2012070694

PATIENT
  Sex: Male
  Weight: 92.97 kg

DRUGS (7)
  1. ENBREL [Suspect]
     Indication: PSORIASIS
     Dosage: 50 MG, QWK
     Route: 058
  2. METFORMIN [Concomitant]
     Dosage: 500 MG, UNK
  3. GLIMEPIRIDE [Concomitant]
     Dosage: 1 MG, UNK
  4. HUMIRA [Concomitant]
     Dosage: UNK
  5. PSORIASIN                          /00325301/ [Concomitant]
     Dosage: UNK
  6. TRADJENTA [Concomitant]
     Dosage: 5 MG, UNK
  7. ENALAPRIL [Concomitant]
     Dosage: 10 MG, UNK

REACTIONS (1)
  - Drug ineffective [Unknown]
